FAERS Safety Report 9263659 (Version 2)
Quarter: 2013Q2

REPORT INFORMATION
  Report Type: Spontaneous
  Country: PR (occurrence: US)
  Receive Date: 20130430
  Receipt Date: 20130507
  Transmission Date: 20140414
  Serious: Yes (Other)
  Sender: FDA-Public Use
  Company Number: PR-PFIZER INC-2013131008

PATIENT
  Age: 74 Year
  Sex: Female

DRUGS (8)
  1. AMIODARONE HCL [Suspect]
     Dosage: 200 MG, EVERY 12HRS
     Route: 048
  2. AMIODARONE [Suspect]
     Dosage: 800 MG IV LOADING DOSE
     Route: 042
  3. SIMVASTATIN [Concomitant]
     Dosage: 20 MG, UNK
  4. ENALAPRIL [Concomitant]
     Dosage: 10 MG, UNK
  5. LEVOTHYROXINE [Concomitant]
     Dosage: 25 UG, UNK
  6. DILTIAZEM [Concomitant]
     Route: 041
  7. LOVENOX [Concomitant]
     Dosage: 60 MG, Q12HRS
     Route: 058
  8. COUMADIN [Concomitant]
     Dosage: 5 MG, DAILY

REACTIONS (1)
  - Hyponatraemia [Recovered/Resolved]
